FAERS Safety Report 5648756-4 (Version None)
Quarter: 2008Q1

REPORT INFORMATION
  Report Type: 
  Country: None (occurrence: None)
  Receive Date: 20080229
  Receipt Date: 20080214
  Transmission Date: 20080703
  Serious: Yes (Hospitalization)
  Sender: FDA-Public Use
  Company Number: S08-FRA-00712-01

PATIENT
  Age: 81 Year
  Sex: Female

DRUGS (7)
  1. MEMANTINE HCL [Suspect]
     Dosage: 10 MG BID PO
     Route: 048
     Dates: start: 20070826, end: 20071022
  2. DEPAKINE (VALPROIC ACID) [Suspect]
     Dosage: 500 MG BID PO
     Route: 048
     Dates: start: 20070826, end: 20071022
  3. VISKEN [Concomitant]
  4. HEPT-A-MYL (HEPTAMINOL HYDROCHLORIDE) [Concomitant]
  5. KARDEGIC (ACETYLSALICYLIC LYSINE) [Concomitant]
  6. CITALOPRAM HYDROBROMIDE [Concomitant]
  7. ARICEPT [Concomitant]

REACTIONS (3)
  - COGNITIVE DISORDER [None]
  - MENTAL IMPAIRMENT [None]
  - MINI MENTAL STATUS EXAMINATION ABNORMAL [None]
